FAERS Safety Report 10651479 (Version 1)
Quarter: 2014Q4

REPORT INFORMATION
  Report Type: Spontaneous
  Country: US (occurrence: None)
  Receive Date: 20141212
  Receipt Date: 20141212
  Transmission Date: 20150529
  Serious: No
  Sender: FDA-Public Use
  Company Number: None

PATIENT
  Sex: Male
  Weight: 75.2 kg

DRUGS (3)
  1. BENDAMUSTINE HYDROCHLORIDE [Suspect]
     Active Substance: BENDAMUSTINE HYDROCHLORIDE
  2. RITUXIMAB (MOAB C2B8 ANTI CD20, CHIMERIC) [Suspect]
     Active Substance: RITUXIMAB
  3. VELCADE [Suspect]
     Active Substance: BORTEZOMIB

REACTIONS (7)
  - Thrombocytopenia [None]
  - Blood uric acid increased [None]
  - Tumour lysis syndrome [None]
  - Splenic infarction [None]
  - Aspartate aminotransferase increased [None]
  - Splenic rupture [None]
  - Epistaxis [None]
